FAERS Safety Report 11926355 (Version 1)
Quarter: 2016Q1

REPORT INFORMATION
  Report Type: Spontaneous
  Country: US (occurrence: None)
  Receive Date: 20160115
  Receipt Date: 20160115
  Transmission Date: 20160526
  Serious: No
  Sender: FDA-Public Use
  Company Number: None

PATIENT
  Age: 24 Year
  Sex: Male

DRUGS (1)
  1. INVEGA [Suspect]
     Active Substance: PALIPERIDONE
     Indication: SCHIZOPHRENIA
     Dosage: Q3MOS
     Route: 028
     Dates: start: 20160113

REACTIONS (2)
  - Palpitations [None]
  - Tachyphrenia [None]

NARRATIVE: CASE EVENT DATE: 20160114
